FAERS Safety Report 7105350-6 (Version None)
Quarter: 2010Q4

REPORT INFORMATION
  Report Type: 
  Country: None (occurrence: None)
  Receive Date: 20101108
  Receipt Date: 20101027
  Transmission Date: 20110411
  Serious: Yes (Life-Threatening, Hospitalization, Other)
  Sender: FDA-Public Use
  Company Number: JHP201000335

PATIENT
  Age: 21 Year
  Sex: Male
  Weight: 57 kg

DRUGS (9)
  1. KETALAR [Suspect]
     Indication: INDUCTION OF ANAESTHESIA
     Dosage: IN DIVIDED DOSES TOTALING 100 MG THEN 100 MG IV, INTRAVENOUS; 100 MG, SINGLE, INTRAVENOUS
     Route: 042
  2. LIDOCAINE 0.5% W/ EPINEPHRINE 1:200,000 [Suspect]
     Dosage: BILATERALLY INTO THE SPHENOPALATINE REGION, INJECTION
  3. PHENYLEPHRINE [Suspect]
     Dosage: APPROXIMATELY 5 TO 10 ML ON SOAKED PLEDGETS INTO THE NASAL CAVITY, TOPICAL
     Route: 061
  4. MIDAZOLAM [Concomitant]
  5. METHYLPREDNISOLONE ACETATE [Concomitant]
  6. DEXMEDETOMIDINE HYDROCHLORIDE [Concomitant]
  7. LIDOCAINE [Concomitant]
  8. ROCURONIUM [Concomitant]
  9. SEVOFLURANE [Concomitant]

REACTIONS (7)
  - BLOOD PRESSURE SYSTOLIC INCREASED [None]
  - CARDIOGENIC SHOCK [None]
  - DRUG INTERACTION [None]
  - ELECTROMECHANICAL DISSOCIATION [None]
  - LEFT VENTRICULAR FAILURE [None]
  - NO THERAPEUTIC RESPONSE [None]
  - PULSE ABSENT [None]
